FAERS Safety Report 7245101-8 (Version None)
Quarter: 2011Q1

REPORT INFORMATION
  Report Type: 
  Country: None (occurrence: None)
  Receive Date: 20110126
  Receipt Date: 20110112
  Transmission Date: 20110831
  Serious: Yes (Hospitalization)
  Sender: FDA-Public Use
  Company Number: GB-CELGENEUS-167-21880-11011009

PATIENT
  Age: 71 Year
  Sex: Male

DRUGS (3)
  1. CYCLOPHOSPHAMIDE [Suspect]
     Route: 048
     Dates: start: 20101216
  2. REVLIMID [Suspect]
     Route: 048
     Dates: start: 20101216
  3. DEXAMETHASONE [Suspect]
     Route: 048
     Dates: start: 20101216

REACTIONS (2)
  - PULMONARY EMBOLISM [None]
  - ELECTROCARDIOGRAM QRS COMPLEX ABNORMAL [None]
